FAERS Safety Report 8180279-3 (Version None)
Quarter: 2012Q1

REPORT INFORMATION
  Report Type: 
  Country: None (occurrence: None)
  Receive Date: 20120302
  Receipt Date: 20120222
  Transmission Date: 20120608
  Serious: Yes (Hospitalization)
  Sender: FDA-Public Use
  Company Number: PHHO2012CN003155

PATIENT
  Sex: Male
  Weight: 60 kg

DRUGS (4)
  1. TASIGNA [Suspect]
     Indication: CHRONIC MYELOID LEUKAEMIA
     Dosage: 600 MG, QD
     Route: 048
     Dates: start: 20111230, end: 20120213
  2. FAMOTIDINE [Concomitant]
     Indication: STRESS ULCER
     Dosage: 20 MG, QD
     Dates: start: 20120131
  3. CEFAMANDOLE SODIUM [Concomitant]
     Indication: EPIDIDYMITIS
     Dosage: 2.0 G, QD
     Dates: start: 20120131
  4. DEXAMETHASONE [Concomitant]
     Indication: EPIDIDYMITIS
     Dosage: 10 MG, QD
     Dates: start: 20120131

REACTIONS (2)
  - HEPATITIS B [None]
  - LIVER DISORDER [None]
